FAERS Safety Report 4943066-2 (Version None)
Quarter: 2006Q1

REPORT INFORMATION
  Report Type: 
  Country: None (occurrence: None)
  Receive Date: 20060314
  Receipt Date: 20050315
  Transmission Date: 20060701
  Serious: Yes (Hospitalization)
  Sender: FDA-Public Use
  Company Number: US-MERCK-0503USA03254

PATIENT
  Age: 67 Year
  Sex: Female
  Weight: 50 kg

DRUGS (9)
  1. VIOXX [Suspect]
     Route: 048
     Dates: start: 20010401, end: 20010701
  2. VIOXX [Suspect]
     Route: 048
     Dates: start: 20040517, end: 20041001
  3. AMBIEN [Concomitant]
     Route: 065
  4. ASPIRIN [Concomitant]
     Route: 065
  5. NIACIN [Concomitant]
     Route: 065
  6. POTASSIUM (UNSPECIFIED) [Concomitant]
     Route: 065
  7. PROTONIX [Concomitant]
     Route: 065
  8. ZYRTEC [Concomitant]
     Route: 065
  9. ZEBETA [Concomitant]
     Route: 065

REACTIONS (7)
  - ANEURYSM [None]
  - BUNDLE BRANCH BLOCK LEFT [None]
  - CARDIAC DISORDER [None]
  - CARDIAC FAILURE CONGESTIVE [None]
  - INTRACRANIAL ANEURYSM [None]
  - LOSS OF CONSCIOUSNESS [None]
  - TRANSIENT ISCHAEMIC ATTACK [None]
